FAERS Safety Report 18139067 (Version 2)
Quarter: 2020Q3

REPORT INFORMATION
  Report Type: Report from Study
  Country: CO (occurrence: CO)
  Receive Date: 20200812
  Receipt Date: 20200828
  Transmission Date: 20201103
  Serious: Yes (Hospitalization, Other)
  Sender: FDA-Public Use
  Company Number: CO-ASTELLAS-2019US020890

PATIENT
  Age: 47 Year
  Sex: Female
  Weight: 37 kg

DRUGS (2)
  1. TACROLIMUS. [Suspect]
     Active Substance: TACROLIMUS
     Indication: RENAL TRANSPLANT
     Dosage: 4 MG (4 CAPSULES OF 1MG), ONCE DAILY
     Route: 048
     Dates: start: 20190219
  2. TACROLIMUS. [Suspect]
     Active Substance: TACROLIMUS
     Route: 048
     Dates: start: 202001

REACTIONS (4)
  - Urinary tract infection [Recovered/Resolved]
  - Fungal skin infection [Recovered/Resolved]
  - Impaired gastric emptying [Unknown]
  - Weight decreased [Recovered/Resolved]

NARRATIVE: CASE EVENT DATE: 20190505
